FAERS Safety Report 15705421 (Version 2)
Quarter: 2018Q4

REPORT INFORMATION
  Report Type: Report from Study
  Country: DE (occurrence: US)
  Receive Date: 20181210
  Receipt Date: 20181210
  Transmission Date: 20190205
  Serious: Yes (Other)
  Sender: FDA-Public Use
  Company Number: DE-MYLANLABS-2018M1089529

PATIENT
  Age: 47 Year
  Sex: Male

DRUGS (1)
  1. CLINDAMYCIN. [Suspect]
     Active Substance: CLINDAMYCIN
     Indication: ANTIBIOTIC PROPHYLAXIS
     Route: 048

REACTIONS (4)
  - Surgical failure [Recovered/Resolved]
  - Graft infection [Recovered/Resolved]
  - Purulent discharge [Recovered/Resolved]
  - Post procedural fistula [Recovered/Resolved]
